FAERS Safety Report 9407260 (Version 2)
Quarter: 2013Q3

REPORT INFORMATION
  Report Type: Spontaneous
  Country: GB (occurrence: GB)
  Receive Date: 20130718
  Receipt Date: 20130801
  Transmission Date: 20140515
  Serious: Yes (Other)
  Sender: FDA-Public Use
  Company Number: GB-PFIZER INC-2013205875

PATIENT
  Sex: Male

DRUGS (5)
  1. PREGABALIN [Suspect]
     Dosage: 75 MG, 3X/DAY
  2. LANSOPRAZOLE [Suspect]
     Dosage: 30 MG, 2X/DAY
  3. EPILIM CHRONO [Suspect]
     Dosage: 500 MG, 3X/DAY
  4. KAPAKE [Suspect]
     Dosage: 500 MG, 3X/DAY
  5. BUTRANS [Suspect]
     Dosage: UNK
     Route: 003

REACTIONS (3)
  - Suicidal ideation [Unknown]
  - Depressed mood [Unknown]
  - Vitamin D deficiency [Unknown]
